FAERS Safety Report 23239320 (Version 2)
Quarter: 2023Q4

REPORT INFORMATION
  Report Type: Spontaneous
  Country: US (occurrence: US)
  Receive Date: 20231129
  Receipt Date: 20231207
  Transmission Date: 20240110
  Serious: No
  Sender: FDA-Public Use
  Company Number: US-drreddys-SPO/USA/23/0183115

PATIENT
  Age: 22 Year

DRUGS (1)
  1. ACCUTANE [Suspect]
     Active Substance: ISOTRETINOIN
     Indication: Product used for unknown indication

REACTIONS (13)
  - Acne [Unknown]
  - Acne pustular [Unknown]
  - Skin mass [Unknown]
  - Telangiectasia [Unknown]
  - Condition aggravated [Unknown]
  - Erythema [Unknown]
  - Arthralgia [Unknown]
  - Lip dry [Unknown]
  - Vision blurred [Unknown]
  - Dry eye [Unknown]
  - Dry skin [Unknown]
  - Drug ineffective [Unknown]
  - Product quality issue [Unknown]
